FAERS Safety Report 14911352 (Version 2)
Quarter: 2018Q3

REPORT INFORMATION
  Report Type: Report from Study
  Country: JP (occurrence: JP)
  Receive Date: 20180518
  Receipt Date: 20180824
  Transmission Date: 20181010
  Serious: Yes (Death, Hospitalization)
  Sender: FDA-Public Use
  Company Number: JP-AMGEN-JPNCT2018067622

PATIENT
  Age: 69 Year
  Sex: Male
  Weight: 63 kg

DRUGS (45)
  1. OLOPATADINE HYDROCHLORIDE. [Concomitant]
     Active Substance: OLOPATADINE HYDROCHLORIDE
     Indication: PRURITUS
     Dosage: 10 MG, UNK
     Route: 048
     Dates: start: 20170803, end: 20170817
  2. FLUCONAZOLE. [Concomitant]
     Active Substance: FLUCONAZOLE
     Dosage: 400 MG, UNK
     Route: 042
     Dates: start: 20170911, end: 20170923
  3. DARBEPOETIN ALFA [Suspect]
     Active Substance: DARBEPOETIN ALFA
     Indication: MYELODYSPLASTIC SYNDROME
     Dosage: 240 MUG, QWK
     Route: 058
     Dates: start: 20170511, end: 20170518
  4. PARIET [Concomitant]
     Active Substance: RABEPRAZOLE SODIUM
     Indication: GASTRITIS PROPHYLAXIS
     Dosage: 10 MG, UNK
     Route: 048
     Dates: start: 20170518, end: 20170803
  5. SODIUM RABEPRAZOLE [Concomitant]
     Active Substance: RABEPRAZOLE SODIUM
     Indication: GASTRITIS PROPHYLAXIS
     Dosage: 10 MG, UNK
     Route: 048
     Dates: start: 20170804
  6. FEBURIC [Concomitant]
     Active Substance: FEBUXOSTAT
     Indication: GOUT
     Dosage: 10 MG, UNK
     Route: 048
  7. DIOVAN [Concomitant]
     Active Substance: VALSARTAN
     Indication: HYPERTENSION
     Dosage: 20 MG, UNK
     Route: 048
  8. EXJADE [Concomitant]
     Active Substance: DEFERASIROX
     Dosage: 1000 MG, UNK
     Route: 048
     Dates: start: 20170817, end: 20170828
  9. VITAMIN B12 [Concomitant]
     Active Substance: CYANOCOBALAMIN
     Indication: ANAEMIA
     Dosage: 1 MG, UNK
     Route: 042
     Dates: start: 20170524, end: 20170529
  10. ROPION [Concomitant]
     Active Substance: FLURBIPROFEN AXETIL
     Indication: PYREXIA
     Dosage: 50 MG, UNK
     Route: 042
     Dates: start: 20171010, end: 20171010
  11. DARBEPOETIN ALFA [Suspect]
     Active Substance: DARBEPOETIN ALFA
     Dosage: 240 MUG, QWK
     Route: 058
     Dates: start: 20170817, end: 20170831
  12. DIOVAN [Concomitant]
     Active Substance: VALSARTAN
     Dosage: 40 MG, WHEN BLOOD PRESSURE WAS OVER 120 MMHG
     Route: 048
  13. S.M. [Concomitant]
     Indication: GASTRITIS PROPHYLAXIS
     Dosage: 3.9 G, UNK
     Route: 048
     Dates: start: 20170529, end: 20170628
  14. EXJADE [Concomitant]
     Active Substance: DEFERASIROX
     Dosage: 500 MG, UNK
     Route: 048
     Dates: start: 20170721, end: 20170806
  15. OMEGACIN [Concomitant]
     Active Substance: BIAPENEM
     Indication: PYREXIA
     Dosage: 0.9 G, UNK
     Route: 042
     Dates: start: 20170911, end: 20170923
  16. LUNESTA [Concomitant]
     Active Substance: ESZOPICLONE
     Indication: INSOMNIA
     Dosage: 2 G, UNK
     Route: 048
     Dates: start: 20170529, end: 20170628
  17. RESTAMIN [Concomitant]
     Active Substance: DIPHENHYDRAMINE
     Indication: PRURITUS
     Dosage: UNK
     Route: 061
     Dates: start: 20170909, end: 20170920
  18. SAXIZON [Concomitant]
     Active Substance: HYDROCORTISONE SODIUM SUCCINATE
     Indication: ALLERGY PROPHYLAXIS
     Dosage: 100 MG, UNK
     Route: 042
     Dates: start: 20170803, end: 20170803
  19. ROPION [Concomitant]
     Active Substance: FLURBIPROFEN AXETIL
     Dosage: 50 MG, UNK
     Route: 042
     Dates: start: 20171012, end: 20171012
  20. CRAVIT [Concomitant]
     Active Substance: LEVOFLOXACIN
     Dosage: 500 MG, UNK
     Route: 048
     Dates: start: 20170722, end: 20170723
  21. CELECOX [Concomitant]
     Active Substance: CELECOXIB
     Indication: OSTEOARTHRITIS
     Dosage: 200 MG, UNK
     Route: 048
     Dates: start: 20170522, end: 20170817
  22. EXJADE [Concomitant]
     Active Substance: DEFERASIROX
     Dosage: 750 MG, UNK
     Route: 048
     Dates: start: 20170807, end: 20170816
  23. BELSOMRA [Concomitant]
     Active Substance: SUVOREXANT
     Indication: INSOMNIA
     Dosage: 15 MG, UNK
     Route: 048
     Dates: start: 20170629, end: 20170706
  24. MAXIPIME [Concomitant]
     Active Substance: CEFEPIME HYDROCHLORIDE
     Indication: PYREXIA
     Dosage: 3 G, UNK
     Route: 042
     Dates: start: 20170724, end: 20170728
  25. STRONGER NEO?MINOPHAGEN C [Concomitant]
     Active Substance: AMMONIUM GLYCYRRHIZATE\CYSTEINE HYDROCHLORIDE\GLYCINE
     Indication: RASH
     Dosage: 20 ML, UNK
     Route: 042
     Dates: start: 20170909, end: 20170909
  26. CRAVIT [Concomitant]
     Active Substance: LEVOFLOXACIN
     Indication: PYREXIA
     Dosage: 500 MG, UNK
     Route: 048
     Dates: start: 20170519, end: 20170601
  27. EXJADE [Concomitant]
     Active Substance: DEFERASIROX
     Dosage: 375 MG, UNK
     Route: 048
     Dates: start: 20170713, end: 20170720
  28. PREDNISOLONE. [Concomitant]
     Active Substance: PREDNISOLONE
     Indication: PROPHYLAXIS
     Dosage: 10 MG, UNK
     Route: 048
     Dates: start: 20170622, end: 20170629
  29. ROZEREM [Concomitant]
     Active Substance: RAMELTEON
     Indication: INSOMNIA
     Dosage: 8 MG, UNK
     Route: 048
     Dates: start: 20170629, end: 20170721
  30. CIPROXAN [Concomitant]
     Active Substance: CIPROFLOXACIN
     Indication: PYREXIA
     Dosage: 600 MG, UNK
     Route: 048
     Dates: start: 20170729, end: 20170803
  31. CANCIDAS [Concomitant]
     Active Substance: CASPOFUNGIN ACETATE
     Indication: PYREXIA
     Dosage: 70 MG, UNK
     Route: 042
     Dates: start: 20170902, end: 20170902
  32. CANCIDAS [Concomitant]
     Active Substance: CASPOFUNGIN ACETATE
     Dosage: 50 MG, UNK
     Route: 042
     Dates: start: 20170903, end: 20170909
  33. DARBEPOETIN ALFA [Suspect]
     Active Substance: DARBEPOETIN ALFA
     Dosage: 240 MUG, QWK
     Route: 058
     Dates: start: 20170601, end: 20170803
  34. POVIDONE?IODINE. [Concomitant]
     Active Substance: POVIDONE-IODINE
     Indication: INFECTION PROPHYLAXIS
     Dosage: ADEQUATE DOSE, UNK
     Route: 049
     Dates: start: 20170518
  35. CALONAL [Concomitant]
     Active Substance: ACETAMINOPHEN
     Indication: PYREXIA
     Dosage: 400 MG, AS NECESSARY (PRN)
     Route: 048
     Dates: start: 20170518
  36. EXJADE [Concomitant]
     Active Substance: DEFERASIROX
     Indication: IRON OVERLOAD
     Dosage: 125 MG, UNK
     Route: 048
     Dates: start: 20170622, end: 20170628
  37. EXJADE [Concomitant]
     Active Substance: DEFERASIROX
     Dosage: 250 MG, UNK
     Route: 048
     Dates: start: 20170629, end: 20170712
  38. ITRIZOLE [Concomitant]
     Active Substance: ITRACONAZOLE
     Indication: INFECTION PROPHYLAXIS
     Dosage: 15 ML, UNK
     Route: 048
     Dates: start: 20170729, end: 20170803
  39. CEFTRIAXONE. [Concomitant]
     Active Substance: CEFTRIAXONE
     Indication: PYREXIA
     Dosage: 2 G, UNK
     Route: 042
     Dates: start: 20170518, end: 20170522
  40. MEROPENEM. [Concomitant]
     Active Substance: MEROPENEM
     Indication: PYREXIA
     Dosage: 1.5 G, UNK
     Route: 042
     Dates: start: 20170826, end: 20170910
  41. POLAPREZINC [Concomitant]
     Active Substance: POLAPREZINC
     Indication: PROPHYLAXIS AGAINST GASTROINTESTINAL ULCER
     Dosage: 150 MG, UNK
     Route: 048
     Dates: start: 20170803
  42. LOXONIN [Concomitant]
     Active Substance: LOXOPROFEN SODIUM
     Indication: OSTEOARTHRITIS
     Dosage: ADEQUATE DOSE, UNK
     Route: 061
     Dates: start: 20170522, end: 20170817
  43. OLOPATADINE HYDROCHLORIDE. [Concomitant]
     Active Substance: OLOPATADINE HYDROCHLORIDE
     Dosage: 10 MG, UNK
     Route: 048
     Dates: start: 20170909
  44. MAXIPIME [Concomitant]
     Active Substance: CEFEPIME HYDROCHLORIDE
     Dosage: 3 G, UNK
     Route: 042
     Dates: start: 20171009, end: 20171011
  45. SAXIZON [Concomitant]
     Active Substance: HYDROCORTISONE SODIUM SUCCINATE
     Dosage: 100 MG, UNK
     Route: 042
     Dates: start: 20170810, end: 20170811

REACTIONS (12)
  - Rash [Recovered/Resolved]
  - Pyrexia [Recovered/Resolved]
  - Myelodysplastic syndrome [Fatal]
  - Pyrexia [Recovered/Resolved]
  - Pyrexia [Recovered/Resolved]
  - Malaise [Recovered/Resolved]
  - Iron overload [Not Recovered/Not Resolved]
  - Pruritus [Recovered/Resolved]
  - Haemolytic anaemia [Fatal]
  - Osteoarthritis [Recovered/Resolved]
  - Pruritus [Recovered/Resolved]
  - Pyrexia [Recovered/Resolved]

NARRATIVE: CASE EVENT DATE: 20170518
